FAERS Safety Report 21572494 (Version 1)
Quarter: 2022Q4

REPORT INFORMATION
  Report Type: Spontaneous
  Country: DE (occurrence: None)
  Receive Date: 20221109
  Receipt Date: 20221109
  Transmission Date: 20230113
  Serious: Yes (Other)
  Sender: FDA-Public Use
  Company Number: DE-Merck Healthcare KGaA-9359538

PATIENT
  Age: 24 Year
  Sex: Female
  Weight: 71 kg

DRUGS (3)
  1. MAVENCLAD [Suspect]
     Active Substance: CLADRIBINE
     Indication: Relapsing-remitting multiple sclerosis
     Dosage: THERAPY DISCONTINUED ON 11 AUG 2022
     Route: 048
     Dates: start: 20220715, end: 20220719
  2. METHYLPREDNISOLONE [Concomitant]
     Active Substance: METHYLPREDNISOLONE
     Indication: Product used for unknown indication
     Dates: start: 20220521, end: 20220525
  3. METHYLPREDNISOLONE [Concomitant]
     Active Substance: METHYLPREDNISOLONE
     Dates: start: 20220531, end: 20220602

REACTIONS (9)
  - Autoimmune hepatitis [Unknown]
  - Anti-actin antibody positive [Unknown]
  - Smooth muscle antibody positive [Unknown]
  - Decreased appetite [Unknown]
  - Fatigue [Unknown]
  - Drug-induced liver injury [Recovering/Resolving]
  - Aspartate aminotransferase increased [Recovering/Resolving]
  - Alanine aminotransferase increased [Recovering/Resolving]
  - Gamma-glutamyltransferase increased [Unknown]

NARRATIVE: CASE EVENT DATE: 20220811
